FAERS Safety Report 4925543-3 (Version None)
Quarter: 2006Q1

REPORT INFORMATION
  Report Type: 
  Country: None (occurrence: None)
  Receive Date: 20060228
  Receipt Date: 20050315
  Transmission Date: 20060701
  Serious: No
  Sender: FDA-Public Use
  Company Number: US-GLAXOSMITHKLINE-A0549843A

PATIENT
  Age: 55 Year
  Sex: Male

DRUGS (9)
  1. LAMICTAL [Suspect]
     Dosage: 50MG TWICE PER DAY
     Route: 048
     Dates: start: 20041007, end: 20050121
  2. ABILIFY [Concomitant]
     Dosage: 10MG IN THE MORNING
  3. ASPIRIN [Concomitant]
     Dosage: 81MG IN THE MORNING
  4. LIPITOR [Concomitant]
     Dosage: 20MG IN THE MORNING
  5. KLONOPIN [Concomitant]
     Dosage: 1MG THREE TIMES PER DAY
  6. DEPAKOTE ER [Concomitant]
     Dosage: 1000MG AT NIGHT
  7. GLUCOTROL [Concomitant]
     Dosage: 10MG IN THE MORNING
  8. METFORMIN [Concomitant]
     Dosage: 500MG TWICE PER DAY
  9. MULTI-VITAMIN [Concomitant]
     Route: 065

REACTIONS (1)
  - RASH [None]
